FAERS Safety Report 9204080 (Version 1)
Quarter: 2013Q2

REPORT INFORMATION
  Report Type: Spontaneous
  Country: US (occurrence: None)
  Receive Date: 20130401
  Receipt Date: 20130401
  Transmission Date: 20140414
  Serious: Yes (Hospitalization, Other)
  Sender: FDA-Public Use
  Company Number: 001497636A

PATIENT
  Age: 24 Year
  Sex: Female

DRUGS (3)
  1. PROACTIV DEEP CLEANSING WASH [Suspect]
     Indication: ACNE
     Dosage: ONCE DAILY DERMAL
     Dates: start: 201210, end: 20130101
  2. ANTIDEPRESSANT [Concomitant]
  3. VITACLEAR VITAMINS [Concomitant]

REACTIONS (4)
  - Staphylococcal infection [None]
  - Ingrown hair [None]
  - Abscess [None]
  - Necrosis [None]
